FAERS Safety Report 7582572-1 (Version None)
Quarter: 2011Q2

REPORT INFORMATION
  Report Type: 
  Country: None (occurrence: None)
  Receive Date: 20110630
  Receipt Date: 20110621
  Transmission Date: 20111010
  Serious: Yes (Death)
  Sender: FDA-Public Use
  Company Number: HU-ASTELLAS-2011EU003638

PATIENT
  Age: 31 Year
  Sex: Female

DRUGS (9)
  1. VANCOMYCIN [Concomitant]
     Indication: SEPSIS
     Dosage: 500 MG, UID/QD
     Route: 042
  2. SOLU-MEDROL [Concomitant]
     Indication: SEPSIS
     Dosage: 125 MG, UNKNOWN/D
     Route: 065
  3. FUROSEMIDE [Concomitant]
     Dosage: UNK
     Route: 065
  4. MYCAMINE [Suspect]
     Indication: SEPSIS
     Dosage: 100 MG, UID/QD
     Route: 042
     Dates: end: 20101004
  5. SUFENTANIL CITRATE [Concomitant]
     Dosage: 1 UG/ML, UNKNOWN/D
     Route: 065
  6. COLISTIN SULFATE [Concomitant]
     Indication: SEPSIS
     Dosage: UNK IU, UNK
     Route: 042
  7. ARTERENOL [Concomitant]
     Dosage: UNK
     Route: 042
  8. PANTOPRAZOLE SODIUM [Concomitant]
     Dosage: 40 MG, BID
     Route: 065
  9. PROPOFOL [Concomitant]
     Dosage: UNK
     Route: 065

REACTIONS (1)
  - LIVER DISORDER [None]
